FAERS Safety Report 21935754 (Version 2)
Quarter: 2023Q2

REPORT INFORMATION
  Report Type: Spontaneous
  Country: US (occurrence: US)
  Receive Date: 20230201
  Receipt Date: 20230614
  Transmission Date: 20230722
  Serious: No
  Sender: FDA-Public Use
  Company Number: US-SA-SAC20230130001524

PATIENT
  Age: 26 Year
  Sex: Male

DRUGS (1)
  1. DUPIXENT [Suspect]
     Active Substance: DUPILUMAB
     Indication: Dermatitis atopic
     Dosage: 300 MG, QOW
     Route: 058
     Dates: start: 202301

REACTIONS (8)
  - Nasopharyngitis [Recovered/Resolved]
  - Fatigue [Unknown]
  - Headache [Unknown]
  - Cognitive disorder [Unknown]
  - Brain fog [Unknown]
  - Mental fatigue [Unknown]
  - Vision blurred [Unknown]
  - Eye inflammation [Recovered/Resolved]

NARRATIVE: CASE EVENT DATE: 20230101
